FAERS Safety Report 7260792-3 (Version None)
Quarter: 2011Q1

REPORT INFORMATION
  Report Type: 
  Country: None (occurrence: None)
  Receive Date: 20110130
  Receipt Date: 20101123
  Transmission Date: 20110831
  Serious: No
  Sender: FDA-Public Use
  Company Number: US-ABBOTT-10P-163-0687230-00

PATIENT
  Weight: 60.382 kg

DRUGS (6)
  1. METHOTREXATE [Concomitant]
     Indication: CROHN'S DISEASE
  2. HUMIRA [Suspect]
     Indication: CROHN'S DISEASE
     Dates: start: 20100801
  3. FOLIC ACID [Concomitant]
     Indication: VITAMIN SUPPLEMENTATION
     Dosage: 4 TIMES EVERY WEEK
  4. VSL  PROBIOTIC [Concomitant]
     Indication: CROHN'S DISEASE
  5. IRON [Concomitant]
     Indication: MINERAL SUPPLEMENTATION
  6. MULTI-VITAMIN [Concomitant]
     Indication: VITAMIN SUPPLEMENTATION

REACTIONS (3)
  - INJECTION SITE NODULE [None]
  - INJECTION SITE PAIN [None]
  - DEVICE MALFUNCTION [None]
